FAERS Safety Report 15316889 (Version 1)
Quarter: 2018Q3

REPORT INFORMATION
  Report Type: Spontaneous
  Country: SA (occurrence: SA)
  Receive Date: 20180824
  Receipt Date: 20180824
  Transmission Date: 20181010
  Serious: Yes (Death, Other)
  Sender: FDA-Public Use
  Company Number: SA-BAYER-2018-156003

PATIENT
  Age: 63 Year
  Sex: Female

DRUGS (2)
  1. CLOPIDOGREL [Interacting]
     Active Substance: CLOPIDOGREL BISULFATE
     Indication: CAROTID ARTERY ANEURYSM
     Dosage: 75 MG, UNK
  2. ACETYLSALICYLIC ACID (} 100 MG) [Suspect]
     Active Substance: ASPIRIN
     Indication: CAROTID ARTERY ANEURYSM
     Dosage: 325 MG, UNK

REACTIONS (3)
  - Cerebral haemorrhage [Fatal]
  - Subdural haemorrhage [Fatal]
  - Labelled drug-drug interaction medication error [None]
